FAERS Safety Report 12230437 (Version 1)
Quarter: 2016Q2

REPORT INFORMATION
  Report Type: Spontaneous
  Country: US (occurrence: US)
  Receive Date: 20160401
  Receipt Date: 20160401
  Transmission Date: 20160815
  Serious: No
  Sender: FDA-Public Use
  Company Number: US-WATSON-2015-24242

PATIENT
  Sex: Female
  Weight: 43 kg

DRUGS (2)
  1. MEDROXYPROGESTERONE [Concomitant]
     Active Substance: MEDROXYPROGESTERONE
     Indication: PRODUCT USED FOR UNKNOWN INDICATION
     Dosage: UNK, UNKNOWN
     Route: 065
  2. ESTRADIOL (WATSON LABORATORIES) [Suspect]
     Active Substance: ESTRADIOL
     Indication: HORMONE THERAPY
     Dosage: UNK, UNKNOWN
     Route: 065
     Dates: end: 20160125

REACTIONS (8)
  - Asthenia [Unknown]
  - Mood altered [Unknown]
  - Weight decreased [Unknown]
  - Breast atrophy [Unknown]
  - Drug ineffective [Unknown]
  - Constipation [Unknown]
  - Premature ageing [None]
  - Muscle atrophy [Unknown]

NARRATIVE: CASE EVENT DATE: 2009
